FAERS Safety Report 26209759 (Version 1)
Quarter: 2025Q4

REPORT INFORMATION
  Report Type: Report from Study
  Country: IN (occurrence: IN)
  Receive Date: 20251229
  Receipt Date: 20251229
  Transmission Date: 20260117
  Serious: Yes (Death)
  Sender: ALEXION PHARMACEUTICALS
  Company Number: IN-AstraZeneca-CH-01021659A

PATIENT
  Sex: Female
  Weight: 82 kg

DRUGS (1)
  1. OLAPARIB [Suspect]
     Active Substance: OLAPARIB
     Indication: Breast cancer female
     Dosage: 150 MILLIGRAM, QD
     Route: 061

REACTIONS (1)
  - Death [Fatal]
